FAERS Safety Report 13900191 (Version 7)
Quarter: 2019Q4

REPORT INFORMATION
  Report Type: Report from Study
  Country: BR (occurrence: BR)
  Receive Date: 20170823
  Receipt Date: 20191216
  Transmission Date: 20200122
  Serious: Yes (Other)
  Sender: FDA-Public Use
  Company Number: BR-BRISTOL-MYERS SQUIBB COMPANY-BMS-2017-075017

PATIENT
  Sex: Female

DRUGS (6)
  1. MIOSAN [Concomitant]
     Active Substance: CYCLOBENZAPRINE
     Indication: PRODUCT USED FOR UNKNOWN INDICATION
     Route: 065
  2. CYCLOBENZAPRINE. [Concomitant]
     Active Substance: CYCLOBENZAPRINE
     Indication: PRODUCT USED FOR UNKNOWN INDICATION
     Dosage: 10 MILLIGRAM
     Route: 065
  3. CYMBI [DULOXETINE HYDROCHLORIDE] [Concomitant]
     Active Substance: DULOXETINE HYDROCHLORIDE
     Indication: PRODUCT USED FOR UNKNOWN INDICATION
     Dosage: UNK
     Route: 065
     Dates: start: 2017
  4. PURAN [Concomitant]
     Active Substance: LEVOTHYROXINE SODIUM
     Indication: PRODUCT USED FOR UNKNOWN INDICATION
     Dosage: 100 MILLIGRAM
     Route: 065
  5. ABATACEPT [Suspect]
     Active Substance: ABATACEPT
     Indication: RHEUMATOID ARTHRITIS
     Dosage: 750 MILLIGRAM (3 VIALS OF 250 MG), QMO
     Route: 042
     Dates: start: 2009
  6. LYRICA [Concomitant]
     Active Substance: PREGABALIN
     Indication: PRODUCT USED FOR UNKNOWN INDICATION
     Dosage: UNK
     Route: 065

REACTIONS (17)
  - Osteomyelitis [Recovering/Resolving]
  - Headache [Unknown]
  - Inflammation [Recovering/Resolving]
  - Pharyngitis [Unknown]
  - Jaw disorder [Recovering/Resolving]
  - Off label use [Unknown]
  - Renal disorder [Unknown]
  - Respiratory tract infection [Recovering/Resolving]
  - Influenza like illness [Unknown]
  - Influenza [Recovering/Resolving]
  - Infection [Recovering/Resolving]
  - Arthritis [Recovering/Resolving]
  - Arrhythmia [Unknown]
  - Gastrointestinal infection [Unknown]
  - Rotator cuff syndrome [Unknown]
  - Vomiting [Unknown]
  - Weight increased [Recovering/Resolving]
